FAERS Safety Report 19352225 (Version 4)
Quarter: 2022Q4

REPORT INFORMATION
  Report Type: Spontaneous
  Country: FR (occurrence: FR)
  Receive Date: 20210531
  Receipt Date: 20221223
  Transmission Date: 20230112
  Serious: Yes (Disabling, Other)
  Sender: FDA-Public Use
  Company Number: FR-BRISTOL-MYERS SQUIBB COMPANY-BMS-2021-038745

PATIENT
  Age: 58 Year
  Sex: Female
  Weight: 50 kg

DRUGS (20)
  1. KENACORT [Suspect]
     Active Substance: TRIAMCINOLONE
     Indication: Rheumatoid arthritis
     Dosage: 80 MILLIGRAM (1 INJECTION (ONCE))
     Route: 030
     Dates: start: 20210316
  2. KENACORT [Suspect]
     Active Substance: TRIAMCINOLONE
     Indication: Polyarthritis
     Dosage: DOSE:UNAVAIBLE, FREQ 1 INJECTION
     Route: 030
     Dates: start: 20210315
  3. CORTISONE [Concomitant]
     Active Substance: CORTISONE
     Indication: Product used for unknown indication
     Dosage: UNK
  4. CORTISONE [Concomitant]
     Active Substance: CORTISONE
  5. MORPHINE [Concomitant]
     Active Substance: MORPHINE
     Indication: Product used for unknown indication
     Dosage: UNK
  6. PREDNISONE [Concomitant]
     Active Substance: PREDNISONE
     Indication: Rheumatoid arthritis
     Dosage: ^20^ AND ^5^ AT 1 PER DAY, NOT FOR A LONG TIME
  7. METHOTREXATE SODIUM [Concomitant]
     Active Substance: METHOTREXATE SODIUM
     Indication: Product used for unknown indication
     Dosage: 15 MILLIGRAM, QWK
  8. FOLIC ACID [Concomitant]
     Active Substance: FOLIC ACID
     Indication: Product used for unknown indication
     Dosage: 5 MILLIGRAM
  9. OXYCODONE HYDROCHLORIDE [Concomitant]
     Active Substance: OXYCODONE HYDROCHLORIDE
     Indication: Product used for unknown indication
     Dosage: 5 MILLIGRAM (6 TABLETS PER DAY - SUFFICIENT QUANTITY FOR 1 MONTH)
  10. OXYCODONE HYDROCHLORIDE [Concomitant]
     Active Substance: OXYCODONE HYDROCHLORIDE
     Dosage: 5 MILLIGRAM (6 TABLETS PER DAY - SUFFICIENT QUANTITY FOR 1 MONTH)
  11. DOLIPRANE [Concomitant]
     Active Substance: ACETAMINOPHEN
     Indication: Product used for unknown indication
     Dosage: 2 TAB 2 TAB (PER DAY - FOR 3 MONTHS)
  12. OMEPRAZOLE [Concomitant]
     Active Substance: OMEPRAZOLE
     Indication: Product used for unknown indication
     Dosage: UNK (CAPSULES PER DAY THE FIRST MONTH THEN 1 CAPSULE PER DAY FOR 3 MONTHS)
  13. DICLOFENAC DIETHYLAMINE [Concomitant]
     Active Substance: DICLOFENAC DIETHYLAMINE
     Indication: Product used for unknown indication
     Dosage: UNK (2 VIALS)
  14. GRAZAX [Concomitant]
     Active Substance: PHLEUM PRATENSE POLLEN
     Indication: Product used for unknown indication
     Dosage: 1 TAB 1 TAB (IN THE EVENING TO MELT IN THE MOUTH, SUFFICIENT QUANTITY FOR 3 MONTHS)
  15. DERINOX [NAPHAZOLINE NITRATE;PREDNISOLONE] [Concomitant]
     Indication: Product used for unknown indication
     Dosage: UNK (1 VIAL PER MONTH - SUFFICIENT QUANTITY FOR 3 MONTHS)
  16. NASONEX [Concomitant]
     Active Substance: MOMETASONE FUROATE
     Indication: Product used for unknown indication
     Dosage: UNK (2 NASAL SPRAYS PER DAY - SUFFICIENT QUANTITY FOR 3 MONTHS)
  17. CROMOLYN SODIUM [Concomitant]
     Active Substance: CROMOLYN SODIUM
     Indication: Product used for unknown indication
     Dosage: UNK (1 DOSE PER DAY - SUFFICIENT QUANTITY FOR 3 MONTHS)
  18. REFRESH [POLYVINYL ALCOHOL;POVIDONE] [Concomitant]
     Indication: Product used for unknown indication
     Dosage: UNK (1 DOSE PER DAY - SUFFICIENT QUANTITY FOR 3 MONTHS)
  19. PRIMPERAN [Concomitant]
     Active Substance: METOCLOPRAMIDE HYDROCHLORIDE
     Indication: Product used for unknown indication
     Dosage: 1 TAB 1 TAB 1 TAB, QD (SUFFICIENT QUANTITY FOR 3 MONTHS)
  20. VOGALENE [Concomitant]
     Active Substance: METOPIMAZINE
     Indication: Product used for unknown indication
     Dosage: UNK (2 BOXES - SUFFICIENT QUANTITY FOR 3 MONTHS)
     Route: 048

REACTIONS (9)
  - Cushing^s syndrome [Not Recovered/Not Resolved]
  - Depression [Not Recovered/Not Resolved]
  - Insomnia [Not Recovered/Not Resolved]
  - Renal failure [Unknown]
  - Adrenal insufficiency [Unknown]
  - Generalised oedema [Unknown]
  - Gait disturbance [Unknown]
  - Fall [Unknown]
  - Off label use [Unknown]

NARRATIVE: CASE EVENT DATE: 20210316
